FAERS Safety Report 5160266-X (Version None)
Quarter: 2006Q4

REPORT INFORMATION
  Report Type: 
  Country: None (occurrence: None)
  Receive Date: 20061129
  Receipt Date: 20000329
  Transmission Date: 20070319
  Serious: Yes (Life-Threatening, Hospitalization)
  Sender: FDA-Public Use
  Company Number: FR-GLAXOSMITHKLINE-B0079754A

PATIENT
  Sex: Female
  Weight: 1 kg

DRUGS (6)
  1. RETROVIR [Suspect]
     Indication: ANTIVIRAL PROPHYLAXIS
     Route: 048
     Dates: start: 20000321, end: 20000406
  2. ZIDOVUDINE [Suspect]
     Indication: ANTIVIRAL PROPHYLAXIS
     Route: 042
     Dates: start: 20000308, end: 20000322
  3. SPIRONOLACTONE [Concomitant]
     Indication: HYPERTENSION
     Route: 048
  4. INDOMETHACIN [Concomitant]
  5. URSODESOXYCHOLIC ACID [Concomitant]
     Route: 065
     Dates: end: 20001001
  6. VITAMIN K1 [Concomitant]
     Route: 065
     Dates: end: 20001001

REACTIONS (15)
  - ABDOMINAL DISTENSION [None]
  - ALANINE AMINOTRANSFERASE INCREASED [None]
  - ASPARTATE AMINOTRANSFERASE INCREASED [None]
  - BILIRUBIN CONJUGATED INCREASED [None]
  - BLOOD ALKALINE PHOSPHATASE INCREASED [None]
  - BLOOD BILIRUBIN INCREASED [None]
  - CONSTIPATION [None]
  - FOETAL DISTRESS SYNDROME [None]
  - GAMMA-GLUTAMYLTRANSFERASE INCREASED [None]
  - GASTROOESOPHAGEAL REFLUX DISEASE [None]
  - HYPERTONIA [None]
  - ILEOSTOMY [None]
  - NECROTISING COLITIS [None]
  - OPISTHOTONUS [None]
  - PREMATURE BABY [None]
